FAERS Safety Report 9291871 (Version 1)
Quarter: 2013Q2

REPORT INFORMATION
  Report Type: Spontaneous
  Country: US (occurrence: US)
  Receive Date: 20130516
  Receipt Date: 20130516
  Transmission Date: 20140414
  Serious: No
  Sender: FDA-Public Use
  Company Number: US-B.I. PHARMACEUTICALS,INC./RIDGEFIELD-2013-BI-13520BP

PATIENT
  Age: 49 Year
  Sex: Male

DRUGS (2)
  1. PRADAXA [Suspect]
     Indication: ATRIAL FIBRILLATION
     Dosage: 300 MG
     Route: 048
     Dates: start: 201212
  2. METOPROLIL [Concomitant]
     Indication: ATRIAL FIBRILLATION
     Dosage: 75 MG
     Route: 048

REACTIONS (2)
  - Arthralgia [Recovered/Resolved]
  - Arrhythmia [Not Recovered/Not Resolved]
